FAERS Safety Report 9352367 (Version 1)
Quarter: 2013Q2

REPORT INFORMATION
  Report Type: Spontaneous
  Country: US (occurrence: US)
  Receive Date: 20130617
  Receipt Date: 20130617
  Transmission Date: 20140414
  Serious: Yes (Other)
  Sender: FDA-Public Use
  Company Number: US-ELI_LILLY_AND_COMPANY-US201306002903

PATIENT
  Age: 86 Year
  Sex: Female

DRUGS (1)
  1. FORTEO [Suspect]
     Indication: OSTEOPOROSIS
     Dosage: UNK
     Dates: end: 2008

REACTIONS (5)
  - Myocardial infarction [Unknown]
  - Coronary artery occlusion [Unknown]
  - Dementia Alzheimer^s type [Unknown]
  - Osteoporosis [Not Recovered/Not Resolved]
  - Fracture [Unknown]
